FAERS Safety Report 22627123 (Version 1)
Quarter: 2023Q2

REPORT INFORMATION
  Report Type: Spontaneous
  Country: GB (occurrence: GB)
  Receive Date: 20230622
  Receipt Date: 20230622
  Transmission Date: 20230722
  Serious: Yes (Other)
  Sender: FDA-Public Use
  Company Number: GB-CELLTRION HEALTHCARE HUNGARY KFT-2021GB011733

PATIENT

DRUGS (30)
  1. TAMOXIFEN [Suspect]
     Active Substance: TAMOXIFEN
     Indication: Breast cancer
     Dosage: 20 MILLIGRAM EVERY 1 DAY (CUMULATIVE DOSE: 27980.0 MG)
     Route: 048
     Dates: start: 20170824
  2. DOCETAXEL [Suspect]
     Active Substance: DOCETAXEL
     Indication: Breast cancer
     Dosage: 180 MILLIGRAM (EVERY 3 WEEKS (CUMULATIVE DOSE: 12540.0 MG)
     Route: 042
     Dates: start: 20170621, end: 20170711
  3. DOCETAXEL [Suspect]
     Active Substance: DOCETAXEL
     Dosage: 200 MILLIGRAM EVERY 3 WEEKS (CUMULATIVE DOSE: 14780.556 MG)
     Route: 042
     Dates: start: 20170324, end: 20170620
  4. DOCETAXEL [Suspect]
     Active Substance: DOCETAXEL
     Dosage: 150 MILLIGRAM
     Route: 042
     Dates: start: 20170712
  5. TRASTUZUMAB [Suspect]
     Active Substance: TRASTUZUMAB
     Indication: Breast cancer
     Dosage: 600 MILLIGRAM EVERY 3 WEEKS (DOSE FORM: 231, CUMULATIVE DOSE: 44341.668 MG)
     Route: 058
     Dates: start: 20170324, end: 20210305
  6. TRASTUZUMAB [Suspect]
     Active Substance: TRASTUZUMAB
     Dosage: 600 MILLIGRAM EVERY 3 WEEKS (DOSE FORM: 231, CUMULATIVE DOSE: 342.85715 MG)
     Route: 058
     Dates: start: 20210611, end: 20210611
  7. TRASTUZUMAB [Suspect]
     Active Substance: TRASTUZUMAB
     Indication: Breast cancer
     Dosage: 600 MILLIGRAM EVERY 3 WEEKS (DOSE FORM: 231, CUMULATIVE DOSE: 44341.668 MG)
     Route: 058
     Dates: start: 20170324, end: 20210305
  8. TRASTUZUMAB [Suspect]
     Active Substance: TRASTUZUMAB
     Dosage: 600 MILLIGRAM EVERY 3 WEEKS (DOSE FORM: 231, CUMULATIVE DOSE: 342.85715 MG)
     Route: 058
     Dates: start: 20210611, end: 20210611
  9. Adcal [Concomitant]
     Indication: Product used for unknown indication
     Dosage: DOSE FORM: 245
     Route: 048
     Dates: start: 20180801
  10. AMOXICILLIN [Concomitant]
     Active Substance: AMOXICILLIN
     Indication: Product used for unknown indication
     Dosage: UNK
     Route: 065
     Dates: start: 20190314
  11. BENZYDAMINE [Concomitant]
     Active Substance: BENZYDAMINE
     Indication: Product used for unknown indication
     Dosage: 10 MILLILITER
     Route: 061
     Dates: start: 20170530
  12. COD LIVER OIL [Concomitant]
     Active Substance: COD LIVER OIL
     Indication: Product used for unknown indication
     Dosage: 1 UNK, QD (DOSE FORM: 245)
     Route: 048
     Dates: start: 20171022
  13. DEXAMETHASONE [Concomitant]
     Active Substance: DEXAMETHASONE
     Indication: Product used for unknown indication
     Dosage: 8 MILLIGRAM
     Route: 048
     Dates: start: 20170323, end: 20170622
  14. DEXAMETHASONE [Concomitant]
     Active Substance: DEXAMETHASONE
     Dosage: 4 MILLIGRAM
     Route: 048
     Dates: start: 20170324, end: 20170715
  15. DEXAMETHASONE [Concomitant]
     Active Substance: DEXAMETHASONE
     Dosage: 2 MILLIGRAM
     Route: 048
     Dates: start: 20170324
  16. DOMPERIDONE [Concomitant]
     Active Substance: DOMPERIDONE
     Indication: Product used for unknown indication
     Dosage: 30 MILLIGRAM EVERY 1 DAY (CUMULATIVE DOSE: 31710.0 MG)
     Route: 048
     Dates: start: 20180801
  17. FILGRASTIM [Concomitant]
     Active Substance: FILGRASTIM
     Indication: Product used for unknown indication
     Dosage: UNK
     Route: 058
     Dates: start: 20170324
  18. FLUCONAZOLE [Concomitant]
     Active Substance: FLUCONAZOLE
     Indication: Product used for unknown indication
     Dosage: 50 MILLIGRAM EVERY 1 DAY (CUMULATIVE DOSE: 74250.0 MG)
     Route: 048
     Dates: start: 20170530
  19. Gelclair [Concomitant]
     Indication: Product used for unknown indication
     Dosage: 3 DOSAGE FORM, ONCE A DAY (3 EVERY 1 DAY)
     Route: 048
     Dates: start: 20170414
  20. LOPERAMIDE [Concomitant]
     Active Substance: LOPERAMIDE
     Indication: Diarrhoea
     Dosage: 1, AS NECESSARY
     Route: 048
     Dates: start: 20170414
  21. OMEPRAZOLE [Concomitant]
     Active Substance: OMEPRAZOLE
     Indication: Product used for unknown indication
     Dosage: UNK
     Route: 065
  22. ONDANSETRON [Concomitant]
     Active Substance: ONDANSETRON
     Indication: Product used for unknown indication
     Dosage: 8 MILLIGRAM EVERY 3 WEEK (CUMULATIVE DOSE: 591.2222MG)
     Route: 065
     Dates: start: 20170324
  23. ACETAMINOPHEN [Concomitant]
     Active Substance: ACETAMINOPHEN
     Indication: Product used for unknown indication
     Dosage: 1 GRAM
     Route: 048
     Dates: start: 20171011
  24. PFIZER-BIONTECH COVID-19 VACCINE [Concomitant]
     Active Substance: TOZINAMERAN
     Indication: Product used for unknown indication
     Dosage: UNK
     Route: 065
     Dates: start: 20210206, end: 20210206
  25. PFIZER-BIONTECH COVID-19 VACCINE [Concomitant]
     Active Substance: TOZINAMERAN
     Dosage: UNK
     Route: 065
     Dates: start: 20210417, end: 20210417
  26. PROCHLORPERAZINE [Concomitant]
     Active Substance: PROCHLORPERAZINE
     Indication: Product used for unknown indication
     Dosage: 5 MILLIGRAM 1 PRN
     Route: 048
     Dates: start: 20190129
  27. SERTRALINE [Concomitant]
     Active Substance: SERTRALINE HYDROCHLORIDE
     Indication: Product used for unknown indication
     Dosage: 50 MG, EVERY 1 DAY (DOSE FORM: 245)
     Route: 048
  28. TRIMETHOPRIM [Concomitant]
     Active Substance: TRIMETHOPRIM
     Indication: Product used for unknown indication
     Dosage: 200 MILLIGRAM
     Route: 048
     Dates: start: 20200723, end: 20200726
  29. TRIMETHOPRIM [Concomitant]
     Active Substance: TRIMETHOPRIM
     Dosage: 400 MILLIGRAM  EVERY 1 DAY (CUMULATIVE DOSE: 132800.0 MG)
     Route: 048
     Dates: start: 20200726
  30. MINERAL OIL [Concomitant]
     Active Substance: MINERAL OIL
     Indication: Product used for unknown indication
     Dosage: 1 UNK, 1 PRN
     Route: 061
     Dates: start: 20170906

REACTIONS (2)
  - Fatigue [Recovering/Resolving]
  - Intentional product use issue [Unknown]

NARRATIVE: CASE EVENT DATE: 20210623
